FAERS Safety Report 17469756 (Version 1)
Quarter: 2020Q1

REPORT INFORMATION
  Report Type: Spontaneous
  Country: US (occurrence: US)
  Receive Date: 20200227
  Receipt Date: 20200227
  Transmission Date: 20200409
  Serious: No
  Sender: FDA-Public Use
  Company Number: US-UPSHER-SMITH LABORATORIES, LLC-2019USL00985

PATIENT
  Age: 18 Year
  Sex: Female
  Weight: 81 kg

DRUGS (2)
  1. ZEMBRACE SYMTOUCH [Suspect]
     Active Substance: SUMATRIPTAN SUCCINATE
     Indication: MIGRAINE
     Dosage: UNK UNK, AS NEEDED
     Route: 058
     Dates: start: 20190710, end: 20190710
  2. LAREN [Concomitant]
     Indication: DYSMENORRHOEA

REACTIONS (6)
  - Musculoskeletal stiffness [Recovered/Resolved]
  - Hot flush [Recovered/Resolved]
  - Muscular weakness [Recovered/Resolved]
  - Paraesthesia [Recovered/Resolved]
  - Migraine [Recovered/Resolved]
  - Dizziness [Recovered/Resolved]

NARRATIVE: CASE EVENT DATE: 20190710
